FAERS Safety Report 5061239-8 (Version None)
Quarter: 2006Q3

REPORT INFORMATION
  Report Type: 
  Country: None (occurrence: None)
  Receive Date: 20060721
  Receipt Date: 20060721
  Transmission Date: 20061208
  Serious: Yes (Other)
  Sender: FDA-Public Use
  Company Number: None

PATIENT
  Age: 59 Year
  Sex: Male
  Weight: 65.318 kg

DRUGS (1)
  1. FOSAMAX [Suspect]
     Indication: OSTEOPOROSIS
     Dosage: 10 MG PO QD
     Route: 048
     Dates: start: 19930402, end: 19970508

REACTIONS (2)
  - BONE DENSITY DECREASED [None]
  - DRUG EFFECT DECREASED [None]
